FAERS Safety Report 9345717 (Version 2)
Quarter: 2013Q3

REPORT INFORMATION
  Report Type: Spontaneous
  Country: US (occurrence: US)
  Receive Date: 20130613
  Receipt Date: 20130805
  Transmission Date: 20140515
  Serious: No
  Sender: FDA-Public Use
  Company Number: US-PFIZER INC-2013175940

PATIENT
  Age: 75 Year
  Sex: Female

DRUGS (23)
  1. EFFEXOR XR [Suspect]
     Dosage: UNK
  2. ARTHROTEC [Suspect]
     Dosage: UNK
  3. FLAGYL [Suspect]
     Dosage: UNK
  4. EFFEXOR [Suspect]
     Dosage: UNK
  5. ZOLOFT [Suspect]
     Dosage: UNK
  6. PENICILLIN G BENZATHINE\PENICILLIN G PROCAINE [Suspect]
  7. ROBAXIN [Suspect]
     Dosage: UNK
  8. CELEXA [Suspect]
     Dosage: UNK
  9. FLOXIN [Suspect]
     Dosage: UNK
  10. SERZONE [Suspect]
  11. BACTRIM [Suspect]
     Dosage: UNK
  12. VIOXX [Suspect]
     Dosage: UNK
  13. CYMBALTA [Concomitant]
     Dosage: UNK
  14. ESTRADIOL [Concomitant]
     Dosage: UNK
  15. EXELON [Concomitant]
     Dosage: UNK
  16. KLONOPIN [Concomitant]
     Dosage: UNK
  17. LEVOTHROID [Concomitant]
     Dosage: UNK
  18. LORAZEPAM [Concomitant]
     Dosage: UNK
  19. MELOXICAM [Concomitant]
     Dosage: UNK
  20. METAMUCIL [Concomitant]
     Dosage: UNK
  21. NAMENDA [Concomitant]
     Dosage: UNK
  22. NEURONTIN [Concomitant]
     Dosage: UNK
  23. OMEPRAZOL [Concomitant]
     Dosage: UNK

REACTIONS (1)
  - Drug hypersensitivity [Unknown]
